FAERS Safety Report 18145133 (Version 1)
Quarter: 2020Q3

REPORT INFORMATION
  Report Type: Spontaneous
  Country: US (occurrence: US)
  Receive Date: 20200813
  Receipt Date: 20200813
  Transmission Date: 20201103
  Serious: No
  Sender: FDA-Public Use
  Company Number: US-PFIZER INC-2020307312

PATIENT
  Age: 65 Year
  Sex: Female

DRUGS (1)
  1. IBRANCE [Suspect]
     Active Substance: PALBOCICLIB
     Indication: BREAST CANCER FEMALE
     Dosage: 125 MG, CYCLIC(125 MG QD (ONCE A DAY) X 21 DAYS Q 28 DAYS)
     Dates: start: 20200226

REACTIONS (2)
  - Alopecia [Unknown]
  - Fatigue [Not Recovered/Not Resolved]
